FAERS Safety Report 6149254-4 (Version None)
Quarter: 2009Q2

REPORT INFORMATION
  Report Type: 
  Country: None (occurrence: None)
  Receive Date: 20090409
  Receipt Date: 20090401
  Transmission Date: 20091009
  Serious: Yes (Hospitalization)
  Sender: FDA-Public Use
  Company Number: GB-AMGEN-US341547

PATIENT
  Sex: Female
  Weight: 58 kg

DRUGS (6)
  1. ENBREL [Suspect]
     Indication: RHEUMATOID ARTHRITIS
     Route: 065
     Dates: end: 20090201
  2. PREMIQUE [Concomitant]
     Indication: HORMONE REPLACEMENT THERAPY
     Dosage: 6.25MG FREQUENCY UNKNOWN
  3. CODEINE PHOSPHATE [Concomitant]
     Dates: start: 19990101
  4. INDAPAMIDE [Concomitant]
     Dosage: 1.5MG FREQUENCY UNKNOWN
     Dates: start: 20050401
  5. LIQUIFILM [Concomitant]
     Dosage: UNKNOWN
  6. PREDNISOLONE [Concomitant]

REACTIONS (1)
  - CATARACT OPERATION [None]
